APPROVED DRUG PRODUCT: VERAPAMIL HYDROCHLORIDE
Active Ingredient: VERAPAMIL HYDROCHLORIDE
Strength: 2.5MG/ML
Dosage Form/Route: INJECTABLE;INJECTION
Application: A072233 | Product #001
Applicant: MARSAM PHARMACEUTICALS LLC
Approved: Feb 26, 1993 | RLD: No | RS: No | Type: DISCN